FAERS Safety Report 4649043-3 (Version None)
Quarter: 2005Q2

REPORT INFORMATION
  Report Type: 
  Country: None (occurrence: None)
  Receive Date: 20050427
  Receipt Date: 20050412
  Transmission Date: 20051028
  Serious: Yes (Hospitalization)
  Sender: FDA-Public Use
  Company Number: 203894

PATIENT
  Sex: Male
  Weight: 81.6475 kg

DRUGS (6)
  1. AVONEX [Suspect]
     Indication: MULTIPLE SCLEROSIS
     Dosage: 30 UG; QW; IM
     Route: 030
     Dates: start: 19970306, end: 20030904
  2. AVONEX [Suspect]
     Indication: MULTIPLE SCLEROSIS
     Dosage: 30 UG; QW; IM
     Route: 030
     Dates: start: 20030904, end: 20040317
  3. AVONEX [Suspect]
     Indication: MULTIPLE SCLEROSIS
     Dosage: 30 UG; QW; IM
     Route: 030
     Dates: start: 20040421
  4. AVONEX [Suspect]
  5. DILANTIN [Concomitant]
  6. EYE DROPS [Concomitant]

REACTIONS (23)
  - ARTHRALGIA [None]
  - ASTHENIA [None]
  - BACTERAEMIA [None]
  - BLADDER SPASM [None]
  - BLOOD PRESSURE INCREASED [None]
  - CONSTIPATION [None]
  - CYSTITIS [None]
  - DEPRESSED LEVEL OF CONSCIOUSNESS [None]
  - FATIGUE [None]
  - FEELING ABNORMAL [None]
  - GASTROINTESTINAL HAEMORRHAGE [None]
  - GASTROOESOPHAGEAL REFLUX DISEASE [None]
  - HAEMORRHOIDS [None]
  - HEART RATE INCREASED [None]
  - HERPES ZOSTER [None]
  - HYPERHIDROSIS [None]
  - MEMORY IMPAIRMENT [None]
  - MUSCLE SPASMS [None]
  - MYALGIA [None]
  - MYOCARDIAL INFARCTION [None]
  - PALLOR [None]
  - RETCHING [None]
  - STRESS [None]
